FAERS Safety Report 3777661 (Version 3)
Quarter: 2020Q3

REPORT INFORMATION
  Report Type: Spontaneous
  Country: GB (occurrence: GB)
  Receive Date: 20020326
  Receipt Date: 20200729
  Transmission Date: 20201103
  Serious: Yes (Disabling, Other)
  Sender: FDA-Public Use
  Company Number: PHBS2002GB03771

PATIENT
  Age: 31 Year
  Sex: Female

DRUGS (10)
  1. OXCARBAZEPINE. [Concomitant]
     Active Substance: OXCARBAZEPINE
     Indication: EPILEPSY
     Dosage: MAX 750 MG PER DAY
     Route: 048
     Dates: start: 20001206, end: 20010114
  2. CLOBAZAM. [Concomitant]
     Active Substance: CLOBAZAM
     Indication: EPILEPSY
     Dosage: 10 MG, QD
     Route: 048
     Dates: start: 20001108, end: 20001124
  3. CARBAMAZEPINE. [Interacting]
     Active Substance: CARBAMAZEPINE
     Dosage: 500 MG 2 TIMES A DAY
     Route: 048
     Dates: start: 20010306
  4. TOPIRAMATE. [Concomitant]
     Active Substance: TOPIRAMATE
     Indication: EPILEPSY
     Dosage: MAX 50 MG/DAY
     Route: 048
     Dates: start: 20010115, end: 20010210
  5. CARBAMAZEPINE. [Suspect]
     Active Substance: CARBAMAZEPINE
     Indication: TONIC CONVULSION
     Dosage: 1800 MG, QD
     Route: 048
     Dates: start: 20010125
  6. CARBAMAZEPINE. [Interacting]
     Active Substance: CARBAMAZEPINE
     Dosage: 400 MG, 2 TIME A DAY
     Route: 065
  7. KEPPRA [Interacting]
     Active Substance: LEVETIRACETAM
     Dosage: 2500 MG, QD
     Route: 065
  8. CARBAMAZEPINE. [Interacting]
     Active Substance: CARBAMAZEPINE
     Dosage: 600 MG, 2 TIME A DAY
     Route: 048
     Dates: start: 20010301
  9. KEPPRA [Interacting]
     Active Substance: LEVETIRACETAM
     Indication: TONIC CONVULSION
     Dosage: 2000 MG, QD
     Route: 065
     Dates: start: 20010223
  10. KEPPRA [Interacting]
     Active Substance: LEVETIRACETAM
     Indication: EPILEPSY
     Dosage: 500 MG, BID
     Route: 065
     Dates: start: 20010216

REACTIONS (9)
  - Prescribed overdose [Unknown]
  - Diplopia [Recovered/Resolved]
  - Headache [Recovered/Resolved]
  - Ataxia [Recovered/Resolved]
  - Dizziness [Recovered/Resolved]
  - Off label use [Unknown]
  - Toxicity to various agents [Recovered/Resolved]
  - Drug interaction [Recovered/Resolved]
  - Drug ineffective [Unknown]

NARRATIVE: CASE EVENT DATE: 20010301
